FAERS Safety Report 9801747 (Version 5)
Quarter: 2014Q2

REPORT INFORMATION
  Report Type: Report from Study
  Country: JP (occurrence: JP)
  Receive Date: 20140107
  Receipt Date: 20140524
  Transmission Date: 20141212
  Serious: Yes (Hospitalization, Other)
  Sender: FDA-Public Use
  Company Number: JP-ABBVIE-14P-087-1186512-00

PATIENT
  Age: 36 Year
  Sex: Male
  Weight: 84.4 kg

DRUGS (11)
  1. HUMIRA [Suspect]
     Indication: RHEUMATOID ARTHRITIS
     Route: 058
     Dates: start: 20130527, end: 20130722
  2. HUMIRA [Suspect]
     Dates: start: 20130909, end: 20131007
  3. HUMIRA [Suspect]
     Dates: start: 20131111
  4. METHOTREXATE [Concomitant]
     Indication: RHEUMATOID ARTHRITIS
  5. FOLIC ACID [Concomitant]
     Indication: PROPHYLAXIS
     Route: 048
  6. TRAMADOL HYDROCHLORIDE/ACETAMINOPHEN [Concomitant]
     Indication: RHEUMATOID ARTHRITIS
     Route: 048
  7. LOXOPROFEN SODIUM HYDRATE [Concomitant]
     Indication: RHEUMATOID ARTHRITIS
     Route: 048
  8. REBAMIPIDE [Concomitant]
     Indication: PROPHYLAXIS
     Route: 048
  9. URSODEOXYCHOLIC ACID [Concomitant]
     Indication: PROPHYLAXIS
     Route: 048
  10. PYRIDOXAL PHOSPHATE HYDRATE [Concomitant]
     Indication: PROPHYLAXIS
     Route: 048
  11. ISONIAZID [Concomitant]
     Indication: ANTIBIOTIC PROPHYLAXIS
     Route: 048

REACTIONS (7)
  - Vitreous haemorrhage [Recovering/Resolving]
  - Cellulitis [Recovering/Resolving]
  - Abscess [Recovering/Resolving]
  - Pyrexia [Recovering/Resolving]
  - Cellulitis [Recovering/Resolving]
  - Skin ulcer [Unknown]
  - Impaired healing [Unknown]
